FAERS Safety Report 23967701 (Version 1)
Quarter: 2024Q2

REPORT INFORMATION
  Report Type: Spontaneous
  Country: US (occurrence: None)
  Receive Date: 20240612
  Receipt Date: 20240612
  Transmission Date: 20240716
  Serious: Yes (Death)
  Sender: FDA-Public Use
  Company Number: None

PATIENT
  Age: 51 Year
  Sex: Male

DRUGS (3)
  1. ALECENSA [Suspect]
     Active Substance: ALECTINIB HYDROCHLORIDE
     Indication: Lung neoplasm malignant
     Dosage: FREQUENCY : TWICE A DAY;?
     Route: 048
     Dates: start: 20220419, end: 20240528
  2. ENOXAPARIN [Concomitant]
     Active Substance: ENOXAPARIN
  3. LORBRENA [Concomitant]
     Active Substance: LORLATINIB

REACTIONS (1)
  - Hypoxia [None]

NARRATIVE: CASE EVENT DATE: 20240528
